FAERS Safety Report 6143943-3 (Version None)
Quarter: 2009Q2

REPORT INFORMATION
  Report Type: 
  Country: None (occurrence: None)
  Receive Date: 20090406
  Receipt Date: 20090325
  Transmission Date: 20091009
  Serious: Yes (Hospitalization, Other)
  Sender: FDA-Public Use
  Company Number: GB-RANBAXY-2006RR-01707

PATIENT
  Age: 64 Year
  Sex: Male

DRUGS (7)
  1. PARACETAMOL [Suspect]
     Route: 065
  2. REMICADE [Suspect]
     Indication: RHEUMATOID ARTHRITIS
     Dosage: 177 MG, UNK
     Route: 042
     Dates: start: 20020930
  3. FERROUS FUMARATE [Suspect]
     Route: 065
  4. OMEPRAZOLE [Concomitant]
     Route: 065
  5. ATENOLOL [Concomitant]
     Route: 065
  6. ACETAMINOPHEN W/ CODEINE [Concomitant]
     Route: 065
  7. AZATHIOPRINE [Concomitant]
     Dosage: UNK
     Route: 065

REACTIONS (3)
  - MULTIPLE DRUG OVERDOSE [None]
  - PERSONALITY CHANGE [None]
  - SUICIDE ATTEMPT [None]
